FAERS Safety Report 6263945-6 (Version None)
Quarter: 2009Q3

REPORT INFORMATION
  Report Type: 
  Country: None (occurrence: None)
  Receive Date: 20090710
  Receipt Date: 20090707
  Transmission Date: 20100115
  Serious: Yes (Death, Other)
  Sender: FDA-Public Use
  Company Number: HU-ROXANE LABORATORIES, INC.-2009-RO-00664RO

PATIENT
  Age: 29 Year
  Sex: Female

DRUGS (1)
  1. METHADONE HCL [Suspect]

REACTIONS (4)
  - MUSCLE INJURY [None]
  - OVERDOSE [None]
  - PULMONARY OEDEMA [None]
  - RESPIRATORY FAILURE [None]
